FAERS Safety Report 17889930 (Version 1)
Quarter: 2020Q2

REPORT INFORMATION
  Report Type: Spontaneous
  Country: US (occurrence: US)
  Receive Date: 20200612
  Receipt Date: 20200612
  Transmission Date: 20200714
  Serious: No
  Sender: FDA-Public Use
  Company Number: US-VISTAPHARM, INC.-VER202004-000842

PATIENT
  Sex: Male
  Weight: 93.98 kg

DRUGS (8)
  1. PEPTO-BISMOL [Concomitant]
     Active Substance: BISMUTH SUBSALICYLATE
     Indication: DIARRHOEA
     Dosage: AS NEEDED
  2. ATORVASTATIN [Concomitant]
     Active Substance: ATORVASTATIN
     Indication: PRODUCT USED FOR UNKNOWN INDICATION
     Dosage: AT BEDTIME
  3. CARVEDILOL. [Concomitant]
     Active Substance: CARVEDILOL
     Indication: PRODUCT USED FOR UNKNOWN INDICATION
     Dosage: ONCE AT NOON AND ONCE BEFORE BEDTIME
  4. CALCIUM CARBONATE. [Concomitant]
     Active Substance: CALCIUM CARBONATE
     Indication: PRODUCT USED FOR UNKNOWN INDICATION
     Dosage: TAKE 2 TABLETS AS NEEDED
  5. VALSARTAN. [Concomitant]
     Active Substance: VALSARTAN
     Indication: PRODUCT USED FOR UNKNOWN INDICATION
     Dosage: AT BEDTIME
  6. NYSTATIN. [Suspect]
     Active Substance: NYSTATIN
     Indication: ORAL CANDIDIASIS
     Dosage: 5 ML (SWISH IN MOUTH AND RETAIN FOR SEVERAL MINUTES BEFORE SWALLOWING)
     Dates: start: 202004, end: 202004
  7. AMOXICILLIN. [Concomitant]
     Active Substance: AMOXICILLIN
     Indication: FUNGAL RHINITIS
     Dates: start: 202004
  8. PEPCID [Concomitant]
     Active Substance: FAMOTIDINE
     Indication: PRODUCT USED FOR UNKNOWN INDICATION

REACTIONS (6)
  - Rhinitis [Unknown]
  - Wrong technique in product usage process [Unknown]
  - Dry throat [Unknown]
  - Throat irritation [Unknown]
  - Stomatitis [Unknown]
  - Throat irritation [Recovering/Resolving]
